FAERS Safety Report 18489924 (Version 1)
Quarter: 2020Q4

REPORT INFORMATION
  Report Type: Spontaneous
  Country: US (occurrence: US)
  Receive Date: 20201111
  Receipt Date: 20201111
  Transmission Date: 20210114
  Serious: Yes (Other)
  Sender: FDA-Public Use
  Company Number: NVSC2020US300086

PATIENT
  Age: 44 Year
  Sex: Male

DRUGS (2)
  1. DABRAFENIB [Suspect]
     Active Substance: DABRAFENIB
     Indication: GLIOBLASTOMA
     Dosage: 150 MG, BID
     Route: 065
  2. TRAMETINIB [Suspect]
     Active Substance: TRAMETINIB
     Indication: GLIOBLASTOMA
     Dosage: 2 MG, QD
     Route: 065

REACTIONS (4)
  - Hemiparesis [Recovering/Resolving]
  - Therapy partial responder [Unknown]
  - Ischaemic stroke [Recovering/Resolving]
  - Product use in unapproved indication [Unknown]
